FAERS Safety Report 9494139 (Version 1)
Quarter: 2013Q3

REPORT INFORMATION
  Report Type: Report from Study
  Country: US (occurrence: US)
  Receive Date: 20130903
  Receipt Date: 20130903
  Transmission Date: 20140515
  Serious: Yes (Other)
  Sender: FDA-Public Use
  Company Number: PHEH2013US018135

PATIENT
  Age: 59 Year
  Sex: Female

DRUGS (2)
  1. GLEEVEC [Suspect]
     Indication: CHRONIC MYELOID LEUKAEMIA
     Dosage: 400 MG, DAILY
     Route: 048
     Dates: start: 20130802, end: 20130813
  2. TASIGNA [Suspect]
     Dosage: UNK UKN, UNK
     Dates: start: 201306

REACTIONS (3)
  - Renal failure [Unknown]
  - Dehydration [Unknown]
  - Electrocardiogram QT prolonged [Unknown]
